FAERS Safety Report 13263672 (Version 4)
Quarter: 2017Q1

REPORT INFORMATION
  Report Type: Spontaneous
  Country: JP (occurrence: JP)
  Receive Date: 20170223
  Receipt Date: 20170328
  Transmission Date: 20170428
  Serious: Yes (Other)
  Sender: FDA-Public Use
  Company Number: JP-UCBSA-2017006996

PATIENT
  Age: 34 Year
  Sex: Female
  Weight: 35 kg

DRUGS (7)
  1. VIMPAT [Suspect]
     Active Substance: LACOSAMIDE
     Indication: EPILEPSY
     Dosage: 50 MG, ONCE DAILY (QD)
     Route: 048
     Dates: start: 20161012, end: 20161108
  2. VIMPAT [Suspect]
     Active Substance: LACOSAMIDE
     Dosage: 50 MG, 2X/DAY (BID)
     Route: 048
     Dates: start: 20161109, end: 20161121
  3. E KEPPRA [Concomitant]
     Active Substance: LEVETIRACETAM
     Indication: EPILEPSY
     Dosage: 750 MG, 2X/DAY (BID)
     Route: 048
     Dates: start: 20140305
  4. EXCEGRAN [Concomitant]
     Active Substance: ZONISAMIDE
     Dosage: 75 MG, 2X/DAY (BID)
     Route: 048
     Dates: start: 20140624, end: 20170202
  5. EXCEGRAN [Concomitant]
     Active Substance: ZONISAMIDE
     Indication: EPILEPSY
     Dosage: 50 MG, 2X/DAY (BID)
     Route: 048
     Dates: start: 20140507, end: 20140623
  6. EXCEGRAN [Concomitant]
     Active Substance: ZONISAMIDE
     Dosage: 25 MG, 2X/DAY (BID)
     Route: 048
     Dates: start: 20170203, end: 20170303
  7. VIMPAT [Suspect]
     Active Substance: LACOSAMIDE
     Dosage: 150 MG, ONCE DAILY (QD)
     Route: 048
     Dates: start: 20161122

REACTIONS (5)
  - Sinus bradycardia [Unknown]
  - Atrioventricular block [Recovered/Resolved]
  - Bradycardia [Unknown]
  - Sinus arrhythmia [Unknown]
  - Inappropriate schedule of drug administration [Unknown]

NARRATIVE: CASE EVENT DATE: 20161012
